FAERS Safety Report 14978805 (Version 1)
Quarter: 2018Q2

REPORT INFORMATION
  Report Type: Spontaneous
  Country: JP (occurrence: JP)
  Receive Date: 20180606
  Receipt Date: 20180606
  Transmission Date: 20180711
  Serious: Yes (Other)
  Sender: FDA-Public Use
  Company Number: JP-ROCHE-2120342

PATIENT
  Age: 63 Year
  Sex: Female
  Weight: 64 kg

DRUGS (5)
  1. TACROLIMUS HYDRATE [Concomitant]
     Active Substance: TACROLIMUS
  2. MYCOPHENOLATE MOFETIL. [Concomitant]
     Active Substance: MYCOPHENOLATE MOFETIL
     Route: 065
     Dates: start: 20130409
  3. LOXOPROFEN SODIUM HYDRATE [Concomitant]
     Active Substance: LOXOPROFEN SODIUM DIHYDRATE
     Route: 048
     Dates: start: 20130402
  4. D-CHLORPHENIRAMINE MALEATE [Concomitant]
     Active Substance: DEXCHLORPHENIRAMINE MALEATE
  5. RITUXAN [Suspect]
     Active Substance: RITUXIMAB
     Indication: IMMUNE TOLERANCE INDUCTION
     Route: 042

REACTIONS (11)
  - Hypertension [Recovering/Resolving]
  - Pneumonia [Recovered/Resolved]
  - Urinary tract infection [Recovered/Resolved]
  - Pleural effusion [Recovering/Resolving]
  - Pyrexia [Recovering/Resolving]
  - Transplant rejection [Recovered/Resolved]
  - Cytomegalovirus infection [Recovered/Resolved]
  - Platelet count decreased [Recovered/Resolved]
  - Anaemia [Recovered/Resolved]
  - Thrombotic microangiopathy [Recovered/Resolved]
  - Off label use [Unknown]

NARRATIVE: CASE EVENT DATE: 20130416
